FAERS Safety Report 5218010-3 (Version None)
Quarter: 2007Q1

REPORT INFORMATION
  Report Type: 
  Country: None (occurrence: None)
  Receive Date: 20061130
  Receipt Date: 20060928
  Transmission Date: 20070707
  Serious: Yes (Hospitalization, Other)
  Sender: FDA-Public Use
  Company Number: US200607002614

PATIENT
  Sex: Female
  Weight: 54.9 kg

DRUGS (12)
  1. ZYPREXA [Suspect]
     Dosage: 15 MG
     Dates: start: 20010101, end: 20030101
  2. CLOZAPINE [Concomitant]
  3. SEROQUEL (QUETIAPINE SUMARATE) [Concomitant]
  4. RISPERDAL /SWE/(RISPERIDONE) [Concomitant]
  5. THORAZINE [Concomitant]
  6. CARBAMAZEPINE [Concomitant]
  7. DEPAKOTE [Concomitant]
  8. LITHIUM CARBONATE [Concomitant]
  9. DOXEPIN HCL [Concomitant]
  10. PAXIL [Concomitant]
  11. INSULIN [Concomitant]
  12. METFORMIN HCL [Concomitant]

REACTIONS (4)
  - DIABETES MELLITUS [None]
  - DIABETIC KETOACIDOSIS [None]
  - METABOLIC DISORDER [None]
  - PANCREATITIS [None]
